FAERS Safety Report 12423625 (Version 3)
Quarter: 2016Q4

REPORT INFORMATION
  Report Type: Spontaneous
  Country: US (occurrence: US)
  Receive Date: 20160601
  Receipt Date: 20161013
  Transmission Date: 20170207
  Serious: Yes (Hospitalization, Other)
  Sender: FDA-Public Use
  Company Number: US-NOVEN PHARMACEUTICALS, INC.-US2015000658

PATIENT

DRUGS (11)
  1. PROTINEX [Concomitant]
  2. LAMICTAL [Concomitant]
     Active Substance: LAMOTRIGINE
     Route: 060
  3. DIAZEPAM. [Concomitant]
     Active Substance: DIAZEPAM
  4. LAMOTRIGINE. [Concomitant]
     Active Substance: LAMOTRIGINE
     Dosage: 100 MG, UNK
  5. GABAPENTIN. [Concomitant]
     Active Substance: GABAPENTIN
  6. DOXEPIN HCL [Concomitant]
     Active Substance: DOXEPIN HYDROCHLORIDE
  7. DAYTRANA [Suspect]
     Active Substance: METHYLPHENIDATE
     Indication: ATTENTION DEFICIT/HYPERACTIVITY DISORDER
     Dosage: USING TWO PATCHES OF 30+15 MG TOGETHER, UNKNOWN
     Route: 062
     Dates: start: 2008, end: 201506
  8. DAYTRANA [Suspect]
     Active Substance: METHYLPHENIDATE
     Dosage: 60 MG, UNK
     Route: 062
     Dates: start: 201506, end: 201509
  9. DAYTRANA [Suspect]
     Active Substance: METHYLPHENIDATE
     Dosage: USING FOUR 20 MG PATCHES, QD
     Route: 062
     Dates: start: 201509
  10. DAYTRANA [Suspect]
     Active Substance: METHYLPHENIDATE
     Dosage: USING TWO, 30MG PATCHES WITH ONE 20MG PATCH TOGETHER, QD
     Route: 062
  11. LISINOPRIL. [Concomitant]
     Active Substance: LISINOPRIL
     Indication: BLOOD PRESSURE ABNORMAL

REACTIONS (8)
  - Cholecystectomy [Recovered/Resolved]
  - Urinary tract infection fungal [Recovering/Resolving]
  - Weight decreased [Unknown]
  - Cholelithiasis [Recovered/Resolved]
  - Prescribed overdose [Not Recovered/Not Resolved]
  - Off label use [Unknown]
  - pH urine decreased [Not Recovered/Not Resolved]
  - Wrong technique in product usage process [Not Recovered/Not Resolved]

NARRATIVE: CASE EVENT DATE: 2008
